FAERS Safety Report 7529032-1 (Version None)
Quarter: 2011Q2

REPORT INFORMATION
  Report Type: 
  Country: None (occurrence: None)
  Receive Date: 20110520
  Receipt Date: 20110411
  Transmission Date: 20111010
  Serious: No
  Sender: FDA-Public Use
  Company Number: 031052

PATIENT
  Sex: Female

DRUGS (1)
  1. LACOSAMIDE [Suspect]

REACTIONS (6)
  - FAECES DISCOLOURED [None]
  - HEADACHE [None]
  - DIZZINESS [None]
  - DYSPNOEA [None]
  - SOMNOLENCE [None]
  - ASTHENIA [None]
